FAERS Safety Report 6189412-6 (Version None)
Quarter: 2009Q2

REPORT INFORMATION
  Report Type: 
  Country: None (occurrence: None)
  Receive Date: 20090512
  Receipt Date: 20090507
  Transmission Date: 20091009
  Serious: Yes (Hospitalization)
  Sender: FDA-Public Use
  Company Number: 2005-12-1064

PATIENT
  Age: 59 Year
  Sex: Male
  Weight: 66 kg

DRUGS (7)
  1. PEG-INTRON [Suspect]
     Indication: HEPATITIS C
     Dosage: 100 MCG; QW; SC
     Route: 058
     Dates: start: 20050316, end: 20060104
  2. REBETOL [Suspect]
     Indication: HEPATITIS C
     Dosage: 800 MG; ; PO, 600 MG; ; PO, 400 MG; ; PO
     Route: 048
     Dates: start: 20050316, end: 20050427
  3. REBETOL [Suspect]
     Indication: HEPATITIS C
     Dosage: 800 MG; ; PO, 600 MG; ; PO, 400 MG; ; PO
     Route: 048
     Dates: start: 20050428, end: 20050719
  4. REBETOL [Suspect]
     Indication: HEPATITIS C
     Dosage: 800 MG; ; PO, 600 MG; ; PO, 400 MG; ; PO
     Route: 048
     Dates: start: 20050720, end: 20060104
  5. LORAMET [Concomitant]
  6. REBETOL [Concomitant]
  7. INTRON A [Concomitant]

REACTIONS (6)
  - ABASIA [None]
  - ASTHENIA [None]
  - DYSSTASIA [None]
  - HYPOAESTHESIA [None]
  - NEUROPATHY PERIPHERAL [None]
  - RADICULOPATHY [None]
